FAERS Safety Report 12490473 (Version 1)
Quarter: 2016Q2

REPORT INFORMATION
  Report Type: Spontaneous
  Country: BR (occurrence: BR)
  Receive Date: 20160622
  Receipt Date: 20160622
  Transmission Date: 20160815
  Serious: Yes (Other)
  Sender: FDA-Public Use
  Company Number: BR-AMGEN-BRASP2013100310

PATIENT
  Age: 27 Year
  Sex: Female

DRUGS (4)
  1. PREDNISONE. [Concomitant]
     Active Substance: PREDNISONE
     Dosage: UNK, DAILY,STRENGTH 10 MG
  2. NAPROXEN. [Concomitant]
     Active Substance: NAPROXEN
     Dosage: UNK, DAILY (STRENGTH 1000 MG)
  3. METHOTREXATE [Concomitant]
     Active Substance: METHOTREXATE
     Dosage: UNK, DAILY,(STRENGTH 10 MG)
  4. ENBREL [Suspect]
     Active Substance: ETANERCEPT
     Indication: PRODUCT USED FOR UNKNOWN INDICATION
     Dosage: UNK
     Route: 065

REACTIONS (3)
  - Nasopharyngitis [Recovered/Resolved]
  - Abasia [Recovering/Resolving]
  - Bone disorder [Unknown]

NARRATIVE: CASE EVENT DATE: 201307
